FAERS Safety Report 7944944-2 (Version None)
Quarter: 2011Q4

REPORT INFORMATION
  Report Type: 
  Country: None (occurrence: None)
  Receive Date: 20111129
  Receipt Date: 20111121
  Transmission Date: 20120403
  Serious: Yes (Hospitalization)
  Sender: FDA-Public Use
  Company Number: PHHO2011KR14072

PATIENT
  Sex: Female
  Weight: 80.2 kg

DRUGS (1)
  1. ZOLEDRONOC ACID [Suspect]
     Indication: OSTEONECROSIS
     Dosage: UNK

REACTIONS (2)
  - OSTEONECROSIS [None]
  - DISEASE PROGRESSION [None]
